FAERS Safety Report 9306616 (Version 2)
Quarter: 2013Q4

REPORT INFORMATION
  Report Type: Spontaneous
  Country: US (occurrence: US)
  Receive Date: 20130523
  Receipt Date: 20131108
  Transmission Date: 20140711
  Serious: Yes (Hospitalization)
  Sender: FDA-Public Use
  Company Number: US-B.I. PHARMACEUTICALS,INC./RIDGEFIELD-2013-BI-14231BP

PATIENT
  Age: 75 Year
  Sex: Male
  Weight: 83.92 kg

DRUGS (10)
  1. PRADAXA [Suspect]
     Indication: ANTICOAGULANT THERAPY
     Dosage: 300 MG
     Dates: start: 20120913, end: 20121031
  2. PRADAXA [Suspect]
     Indication: ATRIAL FIBRILLATION
  3. NORVASC [Concomitant]
  4. METFORMIN [Concomitant]
     Dosage: 1000 MG
  5. LANTUS INSULIN [Concomitant]
  6. COREG CR [Concomitant]
     Dosage: 80 MG
  7. ZOCOR [Concomitant]
  8. LIVALO [Concomitant]
     Dosage: 4 MG
  9. MICARDIS [Concomitant]
     Dosage: 80 MG
  10. CLORTHALIDONE [Concomitant]
     Dosage: 25 MG

REACTIONS (3)
  - Lower gastrointestinal haemorrhage [Unknown]
  - Anaemia [Unknown]
  - Coagulopathy [Unknown]
